FAERS Safety Report 12731412 (Version 2)
Quarter: 2016Q4

REPORT INFORMATION
  Report Type: Spontaneous
  Country: US (occurrence: US)
  Receive Date: 20160912
  Receipt Date: 20161014
  Transmission Date: 20170207
  Serious: No
  Sender: FDA-Public Use
  Company Number: US-ASTRAZENECA-2016SE92870

PATIENT
  Age: 20013 Day
  Sex: Female
  Weight: 69.9 kg

DRUGS (3)
  1. PULMICORT FLEXHALER [Suspect]
     Active Substance: BUDESONIDE
     Indication: ASTHMA
     Dosage: 180 MCG,  TWO PUFFS TWICE DAILY
     Route: 055
     Dates: start: 20160701
  2. PULMICORT FLEXHALER [Suspect]
     Active Substance: BUDESONIDE
     Indication: ASTHMA
     Dosage: 180 MCG,  TWO PUFFS TWICE DAILY
     Route: 055
     Dates: start: 201608
  3. PULMICORT FLEXHALER [Suspect]
     Active Substance: BUDESONIDE
     Indication: ASTHMA
     Dosage: 180 MCG,  TWO PUFFS TWICE DAILY
     Route: 055
     Dates: start: 201601

REACTIONS (2)
  - Asthma [Recovered/Resolved]
  - Product quality issue [Not Recovered/Not Resolved]

NARRATIVE: CASE EVENT DATE: 20160815
